FAERS Safety Report 8538421-8 (Version None)
Quarter: 2012Q3

REPORT INFORMATION
  Report Type: 
  Country: None (occurrence: None)
  Receive Date: 20120712
  Receipt Date: 20120626
  Transmission Date: 20120928
  Serious: Yes (Other)
  Sender: FDA-Public Use
  Company Number: 2012MA008052

PATIENT
  Age: 88 Year
  Sex: Female

DRUGS (4)
  1. VALSARTAN [Concomitant]
  2. ACETAMINOPHEN AND CODEINE PHOSPHATE [Suspect]
     Indication: ARTHRALGIA
     Dosage: 30 MG; PRN; PO
     Route: 048
  3. LATANOPROST [Concomitant]
  4. AMLODIPINE [Concomitant]

REACTIONS (5)
  - CONSTIPATION [None]
  - DRUG DISPENSING ERROR [None]
  - WRONG DRUG ADMINISTERED [None]
  - CONFUSIONAL STATE [None]
  - MEDICATION ERROR [None]
